FAERS Safety Report 9838763 (Version 2)
Quarter: 2014Q1

REPORT INFORMATION
  Report Type: Spontaneous
  Country: FR (occurrence: DE)
  Receive Date: 20140123
  Receipt Date: 20140218
  Transmission Date: 20141002
  Serious: Yes (Life-Threatening, Other)
  Sender: FDA-Public Use
  Company Number: FR-OTSUKA-US-2014-10123

PATIENT
  Age: 5 Month
  Sex: 0

DRUGS (7)
  1. BUSULFEX [Suspect]
     Indication: STEM CELL TRANSPLANT
     Dosage: UNK
     Route: 042
  2. CLONAZEPAM [Concomitant]
     Dosage: UNK
  3. ACYCLOVIR [Concomitant]
     Dosage: UNK
  4. FLUCONAZOLE [Concomitant]
     Dosage: UNK
  5. GENTAMYCIN [Concomitant]
     Dosage: UNK
  6. CEFTAZIDIME [Concomitant]
     Dosage: UNK
  7. METRONIDAZOLE [Concomitant]
     Dosage: UNK

REACTIONS (3)
  - Venoocclusive liver disease [Unknown]
  - Renal failure [Unknown]
  - Coagulopathy [Unknown]
